FAERS Safety Report 6615717-8 (Version None)
Quarter: 2010Q1

REPORT INFORMATION
  Report Type: 
  Country: None (occurrence: None)
  Receive Date: 20100226
  Receipt Date: 20091019
  Transmission Date: 20100710
  Serious: Yes (Other)
  Sender: FDA-Public Use
  Company Number: 007377

PATIENT
  Sex: Female

DRUGS (2)
  1. LEVETIRACETAM [Suspect]
  2. CARBAMAZEPINE [Suspect]

REACTIONS (3)
  - COMPLEX PARTIAL SEIZURES [None]
  - DRUG EXPOSURE DURING PREGNANCY [None]
  - GRAND MAL CONVULSION [None]
